FAERS Safety Report 24796720 (Version 1)
Quarter: 2025Q1

REPORT INFORMATION
  Report Type: Spontaneous
  Country: US (occurrence: US)
  Receive Date: 20250101
  Receipt Date: 20250101
  Transmission Date: 20250409
  Serious: Yes (Hospitalization, Other)
  Sender: BAXTER
  Company Number: US-BAXTER-2024BAX030172

PATIENT
  Age: 51 Year
  Sex: Male
  Weight: 83.9 kg

DRUGS (12)
  1. BORTEZOMIB [Suspect]
     Active Substance: BORTEZOMIB
     Indication: Amyloidosis
     Route: 042
     Dates: start: 20240222
  2. CYCLOPHOSPHAMIDE [Suspect]
     Active Substance: CYCLOPHOSPHAMIDE
     Route: 065
     Dates: start: 20240222
  3. FUROSEMIDE [Suspect]
     Active Substance: FUROSEMIDE
     Route: 065
     Dates: start: 20240122, end: 20240414
  4. ONDANSETRON [Suspect]
     Active Substance: ONDANSETRON
     Route: 065
     Dates: start: 20240222, end: 20240411
  5. DARATUMUMAB [Concomitant]
     Active Substance: DARATUMUMAB
     Route: 065
     Dates: start: 20240222
  6. ACYCLOVIR [Concomitant]
     Active Substance: ACYCLOVIR
     Route: 065
     Dates: start: 20240222
  7. APIXABAN [Concomitant]
     Active Substance: APIXABAN
     Route: 065
     Dates: start: 20240122
  8. CYANOCOBALAMIN [Concomitant]
     Active Substance: CYANOCOBALAMIN
     Route: 065
     Dates: start: 20240221
  9. GABAPENTIN [Concomitant]
     Active Substance: GABAPENTIN
     Route: 065
     Dates: start: 20240222, end: 20240516
  10. Coenzyme coq10 [Concomitant]
     Route: 065
     Dates: start: 20240221, end: 20240411
  11. PANTOPRAZOLE [Concomitant]
     Active Substance: PANTOPRAZOLE
     Route: 065
     Dates: start: 20240122
  12. CHOLECALCIFEROL [Concomitant]
     Active Substance: CHOLECALCIFEROL
     Route: 065
     Dates: end: 20240411

REACTIONS (20)
  - Scrotal infection [Recovered/Resolved]
  - Aortic stenosis [Unknown]
  - Aortic valve incompetence [Unknown]
  - Pulmonary congestion [Unknown]
  - Epididymitis [Unknown]
  - Ventricular hypokinesia [Unknown]
  - Pulmonary oedema [Unknown]
  - Pericardial effusion [Unknown]
  - Scrotal oedema [Recovering/Resolving]
  - Scrotal swelling [Unknown]
  - Scrotal pain [Recovered/Resolved]
  - Intertrigo [Unknown]
  - Urinary tract discomfort [Unknown]
  - Bowel movement irregularity [Unknown]
  - Generalised oedema [Unknown]
  - Hydrocele [Unknown]
  - Atrial pressure increased [Unknown]
  - Cholelithiasis [Unknown]
  - Erythema [Recovering/Resolving]
  - Rash [Unknown]

NARRATIVE: CASE EVENT DATE: 20240315
